FAERS Safety Report 22313239 (Version 1)
Quarter: 2023Q2

REPORT INFORMATION
  Report Type: Spontaneous
  Country: CL (occurrence: CL)
  Receive Date: 20230512
  Receipt Date: 20230512
  Transmission Date: 20230721
  Serious: Yes (Death, Other)
  Sender: FDA-Public Use
  Company Number: CL-002147023-NVSC2023CL108449

PATIENT
  Sex: Female

DRUGS (1)
  1. RIBOCICLIB [Suspect]
     Active Substance: RIBOCICLIB
     Indication: Hormone receptor positive breast cancer
     Dosage: 600 MG, QD
     Route: 048
     Dates: start: 20230323, end: 20230406

REACTIONS (3)
  - Malignant neoplasm progression [Fatal]
  - Hormone receptor positive breast cancer [Fatal]
  - Cancer with a high tumour mutational burden [Unknown]

NARRATIVE: CASE EVENT DATE: 20230323
